FAERS Safety Report 14189646 (Version 2)
Quarter: 2019Q1

REPORT INFORMATION
  Report Type: Spontaneous
  Country: US (occurrence: US)
  Receive Date: 20171115
  Receipt Date: 20190310
  Transmission Date: 20190417
  Serious: Yes (Other)
  Sender: FDA-Public Use
  Company Number: PHEH2017US036426

PATIENT
  Sex: Male

DRUGS (1)
  1. TASIGNA [Suspect]
     Active Substance: NILOTINIB
     Indication: CHRONIC MYELOID LEUKAEMIA
     Dosage: 02 DF, BID
     Route: 048
     Dates: start: 2012

REACTIONS (36)
  - Peripheral vascular disorder [Unknown]
  - Splenomegaly [Unknown]
  - Peripheral artery aneurysm [Unknown]
  - Goitre [Unknown]
  - Anxiety [Unknown]
  - Abdominal pain [Unknown]
  - Hypertension [Unknown]
  - Candida infection [Unknown]
  - Musculoskeletal pain [Unknown]
  - Polyarteritis nodosa [Unknown]
  - Hypogonadism male [Unknown]
  - Skin papilloma [Unknown]
  - Urinary tract infection [Unknown]
  - Spinal pain [Unknown]
  - Coronary artery disease [Unknown]
  - Hypercholesterolaemia [Unknown]
  - Cough [Unknown]
  - Back pain [Unknown]
  - Myalgia [Unknown]
  - Nephrolithiasis [Unknown]
  - Myocardial ischaemia [Unknown]
  - Sinus pain [Unknown]
  - Pharyngitis [Unknown]
  - Headache [Unknown]
  - Chest pain [Unknown]
  - Visceral pain [Unknown]
  - Hiatus hernia [Unknown]
  - Depression [Unknown]
  - Arthralgia [Unknown]
  - Transient ischaemic attack [Unknown]
  - Costochondritis [Unknown]
  - Lymphadenitis [Unknown]
  - Haematuria [Unknown]
  - Intermittent claudication [Unknown]
  - Paraesthesia [Unknown]
  - Fatigue [Unknown]

NARRATIVE: CASE EVENT DATE: 2016
